FAERS Safety Report 8062764-8 (Version None)
Quarter: 2012Q1

REPORT INFORMATION
  Report Type: 
  Country: None (occurrence: None)
  Receive Date: 20120118
  Receipt Date: 20120104
  Transmission Date: 20120608
  Serious: Yes (Hospitalization, Other)
  Sender: FDA-Public Use
  Company Number: 2012MA000213

PATIENT
  Sex: Male
  Weight: 106.5953 kg

DRUGS (16)
  1. CLOPIDAROSIN [Concomitant]
  2. LANTUS [Concomitant]
  3. TARKA [Concomitant]
  4. NITROGLYCERIN [Concomitant]
  5. PNEUMONIA VACCINE [Concomitant]
  6. NORCO [Concomitant]
  7. FLU VACCINE [Concomitant]
  8. HYZAAR [Concomitant]
  9. CRESTOR [Concomitant]
  10. VALIUM [Concomitant]
  11. DIGOXIN [Suspect]
     Indication: PRODUCT USED FOR UNKNOWN INDICATION
     Dosage: 0.125 MG;QD;PO
     Route: 048
     Dates: start: 20080229, end: 20080404
  12. COUMADIN [Concomitant]
  13. PLAVIX [Concomitant]
  14. RANEXA [Concomitant]
  15. APIDRA [Concomitant]
  16. ASPIRIN [Concomitant]

REACTIONS (31)
  - JOINT INJURY [None]
  - DYSPNOEA [None]
  - SLEEP APNOEA SYNDROME [None]
  - VENTRICULAR FIBRILLATION [None]
  - DILATATION VENTRICULAR [None]
  - PERICARDIAL EFFUSION [None]
  - HYPOAESTHESIA [None]
  - HIATUS HERNIA [None]
  - AORTIC VALVE SCLEROSIS [None]
  - CHEST DISCOMFORT [None]
  - NECK PAIN [None]
  - VENTRICULAR EXTRASYSTOLES [None]
  - PAIN [None]
  - GASTRIC DISORDER [None]
  - SUPRAVENTRICULAR EXTRASYSTOLES [None]
  - MYOCARDIAL INFARCTION [None]
  - MITRAL VALVE CALCIFICATION [None]
  - ATRIOVENTRICULAR BLOCK [None]
  - BARRETT'S OESOPHAGUS [None]
  - ANGINA PECTORIS [None]
  - FALL [None]
  - ANAEMIA [None]
  - ELECTROCARDIOGRAM Q WAVES [None]
  - ATELECTASIS [None]
  - HEADACHE [None]
  - BACK PAIN [None]
  - MUSCULAR WEAKNESS [None]
  - DIABETES MELLITUS INADEQUATE CONTROL [None]
  - COLONIC POLYP [None]
  - HUMERUS FRACTURE [None]
  - CORONARY ARTERY OCCLUSION [None]
